FAERS Safety Report 8296366-5 (Version None)
Quarter: 2012Q2

REPORT INFORMATION
  Report Type: 
  Country: None (occurrence: None)
  Receive Date: 20120418
  Receipt Date: 20120413
  Transmission Date: 20120825
  Serious: Yes (Death)
  Sender: FDA-Public Use
  Company Number: ES-MEDIMMUNE-MEDI-0015439

PATIENT

DRUGS (1)
  1. SYNAGIS [Suspect]
     Dates: start: 20110101, end: 20120101

REACTIONS (1)
  - DEATH [None]
